FAERS Safety Report 6076951-1 (Version None)
Quarter: 2009Q1

REPORT INFORMATION
  Report Type: 
  Country: None (occurrence: None)
  Receive Date: 20090213
  Receipt Date: 20090203
  Transmission Date: 20090719
  Serious: Yes (Other)
  Sender: FDA-Public Use
  Company Number: US-ROCHE-608280

PATIENT
  Sex: Male
  Weight: 115.2 kg

DRUGS (4)
  1. PEG-INTERFERON A-2A (RO 25-8310) [Suspect]
     Indication: HEPATITIS C
     Dosage: FORM: PRE-FILLED SYRINGE
     Route: 058
     Dates: start: 20080619
  2. PEG-INTERFERON A-2A (RO 25-8310) [Suspect]
     Dosage: DOSE REDUCED
     Route: 058
  3. RIBAVIRIN [Suspect]
     Indication: HEPATITIS C
     Dosage: DIVIDED DOSES
     Route: 048
     Dates: start: 20080619
  4. NEURONTIN [Concomitant]
     Dosage: AS NEEDED
     Route: 048

REACTIONS (2)
  - HEPATIC MASS [None]
  - THROMBOCYTOPENIA [None]
